FAERS Safety Report 19593063 (Version 1)
Quarter: 2021Q3

REPORT INFORMATION
  Report Type: Spontaneous
  Country: MY (occurrence: MY)
  Receive Date: 20210722
  Receipt Date: 20210722
  Transmission Date: 20211014
  Serious: Yes (Other)
  Sender: FDA-Public Use
  Company Number: MY-ROCHE-2873607

PATIENT
  Age: 58 Year
  Sex: Female

DRUGS (11)
  1. LENALIDOMIDE [Suspect]
     Active Substance: LENALIDOMIDE
     Indication: MYELODYSPLASTIC SYNDROME
  2. VINCRISTINE [Suspect]
     Active Substance: VINCRISTINE
     Indication: MYELODYSPLASTIC SYNDROME
  3. PREDNISOLONE. [Suspect]
     Active Substance: PREDNISOLONE
     Indication: FOLLICULAR LYMPHOMA
     Route: 065
  4. LENALIDOMIDE [Suspect]
     Active Substance: LENALIDOMIDE
     Indication: FOLLICULAR LYMPHOMA
     Dosage: REDUCED TO 10MG EVERY ALTERNATE DAY 1 MONTH LATER
     Route: 065
  5. EPREX [Concomitant]
     Active Substance: ERYTHROPOIETIN
     Dosage: 10,000 UNIT
     Route: 058
  6. CYCLOPHOSPHAMIDE. [Suspect]
     Active Substance: CYCLOPHOSPHAMIDE
     Indication: FOLLICULAR LYMPHOMA
     Route: 065
  7. VINCRISTINE [Suspect]
     Active Substance: VINCRISTINE
     Indication: FOLLICULAR LYMPHOMA
     Route: 065
  8. RITUXIMAB. [Suspect]
     Active Substance: RITUXIMAB
     Indication: MYELODYSPLASTIC SYNDROME
  9. RITUXIMAB. [Suspect]
     Active Substance: RITUXIMAB
     Indication: FOLLICULAR LYMPHOMA
     Route: 065
  10. CYCLOPHOSPHAMIDE. [Suspect]
     Active Substance: CYCLOPHOSPHAMIDE
     Indication: MYELODYSPLASTIC SYNDROME
  11. PREDNISOLONE. [Suspect]
     Active Substance: PREDNISOLONE
     Indication: MYELODYSPLASTIC SYNDROME

REACTIONS (3)
  - Pancytopenia [Unknown]
  - Refractory anaemia with an excess of blasts [Unknown]
  - Neutropenia [Unknown]
